FAERS Safety Report 22045116 (Version 1)
Quarter: 2023Q1

REPORT INFORMATION
  Report Type: Spontaneous
  Country: US (occurrence: None)
  Receive Date: 20230227
  Receipt Date: 20230227
  Transmission Date: 20230417
  Serious: No
  Sender: FDA-Public Use
  Company Number: None

PATIENT
  Age: 76 Year
  Sex: Male
  Weight: 111.6 kg

DRUGS (16)
  1. MOUNJARO [Suspect]
     Active Substance: TIRZEPATIDE
     Indication: Weight decreased
     Dosage: OTHER QUANTITY : 1 INJECTION(S);?OTHER FREQUENCY : ONCE A WEEK;?
     Route: 058
  2. BYETTA [Concomitant]
     Active Substance: EXENATIDE
  3. LANTUS [Concomitant]
     Active Substance: INSULIN GLARGINE
  4. METFORMIN [Concomitant]
     Active Substance: METFORMIN HYDROCHLORIDE
  5. TOPIRAMATE [Concomitant]
     Active Substance: TOPIRAMATE
  6. LIPITOR [Concomitant]
     Active Substance: ATORVASTATIN CALCIUM
  7. FLOMAX [Concomitant]
     Active Substance: TAMSULOSIN HYDROCHLORIDE
  8. TRAZODONE [Concomitant]
     Active Substance: TRAZODONE HYDROCHLORIDE
  9. ambbien [Concomitant]
  10. Depakote (once a month) [Concomitant]
  11. VITAMINS [Concomitant]
     Active Substance: VITAMINS
  12. VITAMIN D3 [Concomitant]
     Active Substance: CHOLECALCIFEROL
  13. FISH OIL [Concomitant]
     Active Substance: FISH OIL
  14. DOCUSATE [Concomitant]
     Active Substance: DOCUSATE
  15. osteobiflex [Concomitant]
  16. ASPIRIN [Concomitant]
     Active Substance: ASPIRIN

REACTIONS (6)
  - Insomnia [None]
  - Gastrointestinal sounds abnormal [None]
  - Constipation [None]
  - Diarrhoea [None]
  - Pharyngeal disorder [None]
  - Fungal test positive [None]

NARRATIVE: CASE EVENT DATE: 20230108
